FAERS Safety Report 5080525-9 (Version None)
Quarter: 2006Q3

REPORT INFORMATION
  Report Type: 
  Country: None (occurrence: None)
  Receive Date: 20060809
  Receipt Date: 20060724
  Transmission Date: 20061208
  Serious: Yes (Hospitalization, Other)
  Sender: FDA-Public Use
  Company Number: 2006AL001961

PATIENT
  Age: 78 Year
  Sex: Female

DRUGS (6)
  1. CITALOPRAM HYDROBROMIDE [Suspect]
     Indication: DEPRESSION
     Dosage: 10 MG; PO
     Route: 048
     Dates: start: 20060131, end: 20060222
  2. BENDROFLUAZIDE [Concomitant]
  3. ALBUTEROL SPIROS [Concomitant]
  4. AMLODIPINE [Concomitant]
  5. ATROVENT [Concomitant]
  6. TRIMETHOPRIM [Concomitant]

REACTIONS (3)
  - CONFUSIONAL STATE [None]
  - DRUG WITHDRAWAL SYNDROME [None]
  - HYPONATRAEMIA [None]
